FAERS Safety Report 11176100 (Version 3)
Quarter: 2015Q3

REPORT INFORMATION
  Report Type: Spontaneous
  Country: US (occurrence: US)
  Receive Date: 20150609
  Receipt Date: 20150715
  Transmission Date: 20151125
  Serious: Yes (Death, Other)
  Sender: FDA-Public Use
  Company Number: US-GLAXOSMITHKLINE-US2015GSK069051

PATIENT
  Sex: Male

DRUGS (1)
  1. VOTRIENT [Suspect]
     Active Substance: PAZOPANIB HYDROCHLORIDE
     Indication: RENAL CANCER
     Dosage: 800 MG, U
     Route: 065
     Dates: start: 20150204

REACTIONS (5)
  - Pneumothorax [Unknown]
  - Neoplasm progression [Unknown]
  - Dyspnoea [Unknown]
  - Renal cancer stage IV [Fatal]
  - Drug ineffective [Unknown]
